FAERS Safety Report 10404340 (Version 1)
Quarter: 2014Q1

REPORT INFORMATION
  Report Type: Spontaneous
  Country: US (occurrence: None)
  Receive Date: 20140228
  Receipt Date: 20140228
  Transmission Date: 20141002
  Serious: No
  Sender: FDA-Public Use
  Company Number: 225152 LEO

PATIENT
  Age: 69 Year
  Sex: Female

DRUGS (2)
  1. PICATO (INGENOL MEBUTATE) (0.015 %, GEL) [Suspect]
     Indication: ACTINIC KERATOSIS
     Route: 061
     Dates: start: 20131204, end: 20131206
  2. VITAMINS (VITAMINS) [Concomitant]

REACTIONS (11)
  - Application site pain [None]
  - Application site erythema [None]
  - Application site vesicles [None]
  - Application site erosion [None]
  - Headache [None]
  - Application site exfoliation [None]
  - Erythema [None]
  - Skin reaction [None]
  - Skin reaction [None]
  - Wrong technique in drug usage process [None]
  - Drug administration error [None]
